FAERS Safety Report 23542243 (Version 2)
Quarter: 2024Q1

REPORT INFORMATION
  Report Type: Spontaneous
  Country: US (occurrence: US)
  Receive Date: 20240220
  Receipt Date: 20240323
  Transmission Date: 20240410
  Serious: Yes (Hospitalization, Disabling, Other)
  Sender: FDA-Public Use
  Company Number: US-JAZZ PHARMACEUTICALS-2024-US-001733

PATIENT
  Age: 13 Year
  Sex: Male
  Weight: 55 kg

DRUGS (7)
  1. RYLAZE [Suspect]
     Active Substance: ASPARAGINASE ERWINIA CHRYSANTHEMI (RECOMBINANT)-RYWN
     Indication: Non-Hodgkin^s lymphoma
     Dosage: 49 MILLIGRAM, TIW QMWFX6 DOSES
     Route: 030
     Dates: start: 20240112, end: 20240124
  2. RYLAZE [Suspect]
     Active Substance: ASPARAGINASE ERWINIA CHRYSANTHEMI (RECOMBINANT)-RYWN
     Indication: Hypersensitivity
     Dosage: 40, 80 MILLIGRAM OF MWF
     Route: 030
     Dates: start: 20240112, end: 20240124
  3. RYLAZE [Suspect]
     Active Substance: ASPARAGINASE ERWINIA CHRYSANTHEMI (RECOMBINANT)-RYWN
     Indication: Acute lymphocytic leukaemia
     Dosage: 40, 80 MILLIGRAM OF MWF
     Route: 030
     Dates: start: 20240115, end: 20240119
  4. METHOREX [Concomitant]
     Indication: Product used for unknown indication
     Dosage: UNK
     Dates: start: 20231229, end: 20240119
  5. CYCLOPHOSPHAMIDE [Concomitant]
     Active Substance: CYCLOPHOSPHAMIDE
     Indication: Product used for unknown indication
     Dosage: UNK
     Dates: start: 20231229, end: 20231229
  6. CYTARABINE [Concomitant]
     Active Substance: CYTARABINE
     Indication: Product used for unknown indication
     Dosage: UNK
     Dates: start: 20231229, end: 20240111
  7. MERCAPTOPURINE [Concomitant]
     Active Substance: MERCAPTOPURINE
     Indication: Product used for unknown indication
     Dosage: UNK
     Dates: start: 20231229, end: 20240111

REACTIONS (2)
  - Superior sagittal sinus thrombosis [Not Recovered/Not Resolved]
  - Subdural haemorrhage [Not Recovered/Not Resolved]

NARRATIVE: CASE EVENT DATE: 20240125
